FAERS Safety Report 4290727-7 (Version None)
Quarter: 2004Q1

REPORT INFORMATION
  Report Type: 
  Country: None (occurrence: None)
  Receive Date: 20040209
  Receipt Date: 20040202
  Transmission Date: 20041129
  Serious: Yes (Death)
  Sender: FDA-Public Use
  Company Number: JP-JNJFOC-20040200159

PATIENT
  Sex: Female

DRUGS (9)
  1. LEVOFLOXACIN [Suspect]
     Indication: DRUG USE FOR UNKNOWN INDICATION
     Dosage: 500 MG, 1 IN 1 DAY, INTRAVENOUS
     Route: 042
     Dates: start: 20001024, end: 20001031
  2. BICLAR (CLARITHROMYCIN) [Concomitant]
  3. LASIX [Concomitant]
  4. SOLU-MEDROL [Concomitant]
  5. ZANTAC [Concomitant]
  6. XANTHIUM (THEOPHYLLINE) [Concomitant]
  7. ACETYLSALICYLIC ACID SRT [Concomitant]
  8. ZYRTEC [Concomitant]
  9. DOUVENT (DUOVENT) [Concomitant]

REACTIONS (2)
  - ASPERGILLOSIS [None]
  - EMPHYSEMA [None]
